FAERS Safety Report 6204757-9 (Version None)
Quarter: 2009Q2

REPORT INFORMATION
  Report Type: 
  Country: None (occurrence: None)
  Receive Date: 20090527
  Receipt Date: 20090515
  Transmission Date: 20091009
  Serious: Yes (Other)
  Sender: FDA-Public Use
  Company Number: GB-PFIZER INC-2008078080

PATIENT
  Age: 34 Year

DRUGS (2)
  1. CHAMPIX [Suspect]
     Dosage: 1 MG, 2X/DAY
     Route: 048
     Dates: start: 20080524, end: 20080815
  2. CONTRACEPTIVE, UNSPECIFIED [Concomitant]
     Dosage: UNK

REACTIONS (3)
  - AGITATED DEPRESSION [None]
  - DEPRESSED MOOD [None]
  - TEARFULNESS [None]
